FAERS Safety Report 5636297-X (Version None)
Quarter: 2008Q1

REPORT INFORMATION
  Report Type: 
  Country: None (occurrence: None)
  Receive Date: 20080225
  Receipt Date: 20080217
  Transmission Date: 20080703
  Serious: Yes (Death)
  Sender: FDA-Public Use
  Company Number: DE-BAYER-200813349GPV

PATIENT
  Sex: Female

DRUGS (1)
  1. AVELOX [Suspect]
     Indication: DRUG USE FOR UNKNOWN INDICATION
     Route: 065

REACTIONS (5)
  - HEPATIC FAILURE [None]
  - HEPATIC LESION [None]
  - PYREXIA [None]
  - SEPSIS [None]
  - WHITE BLOOD CELL COUNT INCREASED [None]
